FAERS Safety Report 6341846-2 (Version None)
Quarter: 2009Q3

REPORT INFORMATION
  Report Type: 
  Country: None (occurrence: None)
  Receive Date: 20090904
  Receipt Date: 20090831
  Transmission Date: 20100115
  Serious: Yes (Other)
  Sender: FDA-Public Use
  Company Number: US-GILEAD-2009-0023928

PATIENT
  Sex: Female
  Weight: 88.984 kg

DRUGS (16)
  1. LETAIRIS [Suspect]
     Indication: PULMONARY ARTERIAL HYPERTENSION
     Route: 048
     Dates: start: 20090328, end: 20090428
  2. REVATIO [Concomitant]
     Dates: start: 20080627
  3. DEMADEX [Concomitant]
  4. ALDACTONE [Concomitant]
  5. BENICAR [Concomitant]
  6. ZANTAC [Concomitant]
  7. PROPOXYPHENE NAPSYLATE AND ACETAMINOPHEN [Concomitant]
  8. MENEST [Concomitant]
  9. METHOCARBAMOL [Concomitant]
  10. LEVOXYL [Concomitant]
  11. FOLIC ACID [Concomitant]
  12. GERITOL [Concomitant]
  13. ALEVE [Concomitant]
  14. CRANBERRY [Concomitant]
  15. ZETIA [Concomitant]
  16. VITAMIN B-12 [Concomitant]

REACTIONS (4)
  - DECREASED APPETITE [None]
  - MALAISE [None]
  - RENAL FAILURE ACUTE [None]
  - RENAL IMPAIRMENT [None]
